FAERS Safety Report 16149614 (Version 1)
Quarter: 2019Q2

REPORT INFORMATION
  Report Type: Spontaneous
  Country: US (occurrence: US)
  Receive Date: 20190402
  Receipt Date: 20190402
  Transmission Date: 20190711
  Serious: Yes (Other)
  Sender: FDA-Public Use
  Company Number: US-SUNOVION-2019SUN001315

PATIENT
  Sex: Female

DRUGS (2)
  1. OMEPRAZOLE. [Suspect]
     Active Substance: OMEPRAZOLE
     Indication: GASTROOESOPHAGEAL REFLUX DISEASE
  2. XOPENEX [Suspect]
     Active Substance: LEVALBUTEROL HYDROCHLORIDE
     Dosage: UNK
     Route: 055

REACTIONS (10)
  - Wheezing [Unknown]
  - Tremor [Unknown]
  - Nausea [Unknown]
  - Mouth swelling [Unknown]
  - Pharyngeal swelling [Unknown]
  - Headache [Unknown]
  - Feeling abnormal [Unknown]
  - Swelling face [Unknown]
  - Malaise [Unknown]
  - Chest discomfort [Unknown]
